FAERS Safety Report 7112512-0 (Version None)
Quarter: 2010Q4

REPORT INFORMATION
  Report Type: 
  Country: None (occurrence: None)
  Receive Date: 20101119
  Receipt Date: 20101108
  Transmission Date: 20110411
  Serious: Yes (Hospitalization)
  Sender: FDA-Public Use
  Company Number: US-BAYER-201027360NA

PATIENT
  Age: 38 Year
  Sex: Female
  Weight: 49 kg

DRUGS (11)
  1. YASMIN [Suspect]
     Indication: CONTRACEPTION
     Route: 048
     Dates: start: 20040117, end: 20050128
  2. SYNTHROID [Concomitant]
     Indication: HYPOTHYROIDISM
     Dosage: TOTAL DAILY DOSE: 75 ?G  UNIT DOSE: 75 ?G
     Route: 048
     Dates: start: 20010101
  3. ADVIL [Concomitant]
     Indication: PAIN
     Route: 048
  4. MOTRIN [Concomitant]
     Indication: PAIN
     Route: 048
  5. ASCORBIC ACID [Concomitant]
     Route: 048
  6. SEREVENT [Concomitant]
     Indication: ASTHMA
     Route: 055
     Dates: start: 20000101
  7. PROVENTIL [Concomitant]
     Indication: ASTHMA
     Route: 055
     Dates: start: 20000101
  8. ADVAIR DISKUS 100/50 [Concomitant]
     Indication: ASTHMA
  9. ALBUTEROL [Concomitant]
     Indication: ASTHMA
     Route: 055
     Dates: start: 20000101
  10. ACIPHEX [Concomitant]
     Indication: ASTHMA
     Dates: start: 20010101
  11. VALTREX [Concomitant]
     Indication: GASTROOESOPHAGEAL REFLUX DISEASE

REACTIONS (3)
  - DEEP VEIN THROMBOSIS [None]
  - PLEURITIC PAIN [None]
  - PULMONARY EMBOLISM [None]
